FAERS Safety Report 12238824 (Version 1)
Quarter: 2016Q2

REPORT INFORMATION
  Report Type: Spontaneous
  Country: US (occurrence: None)
  Receive Date: 20160404
  Receipt Date: 20160404
  Transmission Date: 20160815
  Serious: No
  Sender: FDA-Public Use
  Company Number: None

PATIENT
  Age: 56 Year
  Sex: Female

DRUGS (1)
  1. IMATINIB 400MG SUN PHARMACEUTICALS [Suspect]
     Active Substance: IMATINIB
     Route: 048
     Dates: start: 20160307

REACTIONS (5)
  - Product substitution issue [None]
  - Oedema [None]
  - Back pain [None]
  - Weight increased [None]
  - Pruritus [None]

NARRATIVE: CASE EVENT DATE: 20160307
